FAERS Safety Report 7366660-0 (Version None)
Quarter: 2011Q1

REPORT INFORMATION
  Report Type: 
  Country: None (occurrence: None)
  Receive Date: 20110322
  Receipt Date: 20110316
  Transmission Date: 20110831
  Serious: Yes (Death)
  Sender: FDA-Public Use
  Company Number: FR-SANOFI-AVENTIS-2011SA015757

PATIENT
  Age: 59 Year
  Sex: Female

DRUGS (3)
  1. METFORMIN [Suspect]
     Route: 048
     Dates: end: 20110225
  2. DOMPERIDONE [Concomitant]
     Route: 048
     Dates: end: 20110225
  3. HEMI-DAONIL [Suspect]
     Route: 048
     Dates: end: 20110225

REACTIONS (2)
  - HYPOGLYCAEMIA [None]
  - LACTIC ACIDOSIS [None]
